FAERS Safety Report 4547866-2 (Version None)
Quarter: 2004Q4

REPORT INFORMATION
  Report Type: 
  Country: None (occurrence: None)
  Receive Date: 20041227
  Receipt Date: 20041119
  Transmission Date: 20050328
  Serious: No
  Sender: FDA-Public Use
  Company Number: 04P-163-0280999-00

PATIENT
  Age: 62 Year
  Sex: Male
  Weight: 109 kg

DRUGS (8)
  1. HUMIRA [Suspect]
     Indication: RHEUMATOID ARTHRITIS
     Dosage: 40 MG, 1 IN 2 WK, SUBCUTANEOUS
     Route: 058
     Dates: start: 20030101
  2. AMLODIPINE BESYLATE [Concomitant]
  3. QUINAPRIL HYDROCHLORIDE [Concomitant]
  4. HYDROCHLOROTHIAZIDE [Concomitant]
  5. METHOTREXATE [Concomitant]
  6. FOLIC ACID [Concomitant]
  7. ALBUTEROL [Concomitant]
  8. SPIRIVA [Concomitant]

REACTIONS (1)
  - ARTHRALGIA [None]
